FAERS Safety Report 14424493 (Version 1)
Quarter: 2018Q1

REPORT INFORMATION
  Report Type: Spontaneous
  Country: IT (occurrence: IT)
  Receive Date: 20180123
  Receipt Date: 20180123
  Transmission Date: 20180509
  Serious: Yes (Other)
  Sender: FDA-Public Use
  Company Number: IT-MYLANLABS-2018M1004807

PATIENT
  Age: 73 Year
  Sex: Male

DRUGS (4)
  1. CYTARABINE. [Suspect]
     Active Substance: CYTARABINE
     Indication: DIFFUSE LARGE B-CELL LYMPHOMA
     Dosage: HIGH DOSE; ALTERNATING WITH BI-WEEKLY ADMINISTRATION OF INTRATHECAL LIPOSOMAL CYTARABINE FOR FOUR...
     Route: 065
  2. LENALIDOMIDE [Suspect]
     Active Substance: LENALIDOMIDE
     Indication: DIFFUSE LARGE B-CELL LYMPHOMA
     Dosage: 15MG DAILY EVERY 4 WEEKS FOR 21 CONSECUTIVE DAYS
     Route: 065
  3. METHOTREXATE. [Suspect]
     Active Substance: METHOTREXATE
     Indication: DIFFUSE LARGE B-CELL LYMPHOMA
     Dosage: HIGH DOSE; ALTERNATING WITH BI-WEEKLY ADMINISTRATION OF INTRATHECAL LIPOSOMAL CYTARABINE FOR FOUR...
     Route: 065
  4. CYTARABINE. [Suspect]
     Active Substance: CYTARABINE
     Indication: DIFFUSE LARGE B-CELL LYMPHOMA
     Dosage: BI-WEEKLY ADMINISTRATION FOR FOUR CYCLES
     Route: 037

REACTIONS (4)
  - Pneumonia [Unknown]
  - Neutropenia [Unknown]
  - Pancytopenia [Recovered/Resolved]
  - Stomatitis [Recovered/Resolved]
